FAERS Safety Report 10688536 (Version 1)
Quarter: 2015Q1

REPORT INFORMATION
  Report Type: Spontaneous
  Country: US (occurrence: US)
  Receive Date: 20150102
  Receipt Date: 20150102
  Transmission Date: 20150720
  Serious: No
  Sender: FDA-Public Use
  Company Number: US-ASTRAZENECA-2015SE00236

PATIENT
  Age: 60 Year
  Sex: Male

DRUGS (1)
  1. NEXIUM 24HR [Suspect]
     Active Substance: ESOMEPRAZOLE MAGNESIUM
     Indication: DYSPEPSIA
     Route: 048

REACTIONS (10)
  - Alopecia [Unknown]
  - Fatigue [Unknown]
  - Anaemia [Unknown]
  - Vitamin B12 decreased [Unknown]
  - Mineral deficiency [Unknown]
  - Multi-vitamin deficiency [Unknown]
  - Off label use [Unknown]
  - Blood iron decreased [Unknown]
  - Blood magnesium decreased [Unknown]
  - Blood zinc decreased [Unknown]
